FAERS Safety Report 8965494 (Version 2)
Quarter: 2013Q1

REPORT INFORMATION
  Report Type: Spontaneous
  Country: GB (occurrence: GB)
  Receive Date: 20121213
  Receipt Date: 20130205
  Transmission Date: 20140127
  Serious: Yes (Hospitalization)
  Sender: FDA-Public Use
  Company Number: GB-ASTRAZENECA-2012SE91149

PATIENT
  Age: 59 Year
  Sex: Female
  Weight: 52 kg

DRUGS (11)
  1. OMEPRAZOLE [Suspect]
     Indication: PROPHYLAXIS
     Route: 048
  2. TELFAST [Interacting]
     Indication: PRURITUS GENERALISED
     Route: 048
     Dates: start: 20121107, end: 20121109
  3. TELFAST [Interacting]
     Indication: PRURITUS
     Route: 048
     Dates: start: 20121107, end: 20121109
  4. ADCAL-D3 [Concomitant]
     Indication: MINERAL SUPPLEMENTATION
     Route: 048
  5. CANDESARTAN CILEXETIL [Concomitant]
     Indication: BLOOD PRESSURE MANAGEMENT
     Route: 048
  6. CROTAMITON [Concomitant]
     Route: 061
  7. DARBEPOETIN ALFA [Concomitant]
     Indication: MINERAL SUPPLEMENTATION
  8. DIPROBASE [Concomitant]
     Dosage: TWICE DAILY
     Route: 061
  9. DOXAZOSIN MESILATE [Concomitant]
  10. FOLIC ACID [Concomitant]
     Route: 048
  11. PREDNISONE [Concomitant]
     Route: 048

REACTIONS (4)
  - Drug interaction [Recovering/Resolving]
  - Pain [Recovering/Resolving]
  - Muscular weakness [Recovering/Resolving]
  - Paraesthesia [Recovering/Resolving]
